FAERS Safety Report 12055250 (Version 2)
Quarter: 2016Q3

REPORT INFORMATION
  Report Type: Spontaneous
  Country: US (occurrence: US)
  Receive Date: 20160209
  Receipt Date: 20160930
  Transmission Date: 20161109
  Serious: Yes (Other)
  Sender: FDA-Public Use
  Company Number: US-BAYER-2016-024270

PATIENT
  Age: 20 Year
  Sex: Female

DRUGS (3)
  1. HYDROCODONE [Concomitant]
     Active Substance: HYDROCODONE
  2. IBUPROFEN. [Concomitant]
     Active Substance: IBUPROFEN
  3. MIRENA [Suspect]
     Active Substance: LEVONORGESTREL
     Dosage: 20 MCG/24HR, CONT
     Route: 015
     Dates: start: 20140430, end: 20150324

REACTIONS (9)
  - Intraocular pressure increased [None]
  - Blindness unilateral [None]
  - Phonophobia [None]
  - Visual acuity reduced [None]
  - Headache [None]
  - Photophobia [None]
  - Loss of consciousness [None]
  - Benign intracranial hypertension [None]
  - Visual impairment [None]

NARRATIVE: CASE EVENT DATE: 201501
